FAERS Safety Report 6701399-3 (Version None)
Quarter: 2010Q2

REPORT INFORMATION
  Report Type: 
  Country: None (occurrence: None)
  Receive Date: 20100429
  Receipt Date: 20100422
  Transmission Date: 20101027
  Serious: Yes (Hospitalization)
  Sender: FDA-Public Use
  Company Number: 2009BI026751

PATIENT
  Age: 49 Year
  Sex: Female

DRUGS (1)
  1. TYSABRI [Suspect]
     Indication: MULTIPLE SCLEROSIS
     Route: 042
     Dates: start: 20080828

REACTIONS (5)
  - CHOLELITHIASIS [None]
  - COLONIC POLYP [None]
  - DIVERTICULUM INTESTINAL [None]
  - HEPATIC STEATOSIS [None]
  - NAUSEA [None]
